FAERS Safety Report 10982658 (Version 1)
Quarter: 2015Q2

REPORT INFORMATION
  Report Type: Spontaneous
  Country: AR (occurrence: AR)
  Receive Date: 20150403
  Receipt Date: 20150403
  Transmission Date: 20150821
  Serious: Yes (Other)
  Sender: FDA-Public Use
  Company Number: AR-AMGEN-ARGSP2015032057

PATIENT
  Age: 73 Year
  Sex: Female

DRUGS (1)
  1. ENBREL [Suspect]
     Active Substance: ETANERCEPT
     Indication: RHEUMATOID ARTHRITIS
     Dosage: 50 MG, WEEKLY
     Route: 065
     Dates: start: 20070413

REACTIONS (3)
  - Arthropathy [Recovering/Resolving]
  - Strangulated hernia [Recovered/Resolved]
  - Gallbladder disorder [Recovering/Resolving]

NARRATIVE: CASE EVENT DATE: 2015
